FAERS Safety Report 11944741 (Version 1)
Quarter: 2016Q1

REPORT INFORMATION
  Report Type: Spontaneous
  Country: US (occurrence: US)
  Receive Date: 20160125
  Receipt Date: 20160125
  Transmission Date: 20160526
  Serious: Yes (Death)
  Sender: FDA-Public Use
  Company Number: US-SA-2016SA013176

PATIENT
  Age: 70 Year
  Sex: Female
  Weight: 92.53 kg

DRUGS (1)
  1. MULTAQ [Suspect]
     Active Substance: DRONEDARONE
     Route: 065

REACTIONS (9)
  - Rib fracture [Fatal]
  - Atrial fibrillation [Fatal]
  - Cardiomegaly [Fatal]
  - Injury [Fatal]
  - Fall [Fatal]
  - Coma [Fatal]
  - Scapula fracture [Fatal]
  - Sepsis [Fatal]
  - Multiple organ dysfunction syndrome [Fatal]
